FAERS Safety Report 10207059 (Version 1)
Quarter: 2014Q2

REPORT INFORMATION
  Report Type: Spontaneous
  Country: US (occurrence: None)
  Receive Date: 20140527
  Receipt Date: 20140527
  Transmission Date: 20141212
  Serious: Yes (Hospitalization)
  Sender: FDA-Public Use
  Company Number: None

PATIENT
  Age: 45 Year
  Sex: Male

DRUGS (11)
  1. HALOPERIDOL [Suspect]
     Indication: DELIRIUM
     Route: 042
     Dates: start: 20120605, end: 20120605
  2. ACYCLOVIR [Concomitant]
  3. CEFTRIAXONE [Concomitant]
  4. VANCOMYCIN [Concomitant]
  5. ENOXAPARIN [Concomitant]
  6. FLUDROCORTISONE [Concomitant]
  7. HYDROCORTISONE [Concomitant]
  8. PHENYTOIND [Concomitant]
  9. LACOSAMIDE [Suspect]
  10. LEVETIRACETAM [Suspect]
  11. LANSOPRAZOLE [Concomitant]

REACTIONS (6)
  - Pyrexia [None]
  - Delirium [None]
  - Muscle contractions involuntary [None]
  - Respiratory rate increased [None]
  - Hypoxia [None]
  - Condition aggravated [None]
